FAERS Safety Report 19938368 (Version 1)
Quarter: 2021Q4

REPORT INFORMATION
  Report Type: Spontaneous
  Country: US (occurrence: US)
  Receive Date: 20211011
  Receipt Date: 20211011
  Transmission Date: 20220303
  Serious: Yes (Life-Threatening, Hospitalization, Other)
  Sender: FDA-Public Use
  Company Number: US-MLMSERVICE-20210924-3126723-1

PATIENT

DRUGS (3)
  1. OLANZAPINE [Suspect]
     Active Substance: OLANZAPINE
     Indication: Schizophrenia
     Dosage: 20 MG DAILY
     Route: 065
  2. HALOPERIDOL [Concomitant]
     Active Substance: HALOPERIDOL
     Indication: Schizophrenia
     Dosage: 10 MG DAILY
     Route: 065
  3. HALOPERIDOL DECANOATE [Concomitant]
     Active Substance: HALOPERIDOL DECANOATE
     Indication: Schizophrenia
     Dosage: 100 MILLIGRAM EVERY 4 WEEKS
     Route: 065

REACTIONS (7)
  - Pancreatitis necrotising [Not Recovered/Not Resolved]
  - Lactic acidosis [Unknown]
  - Peptostreptococcus infection [Unknown]
  - Bacteraemia [Unknown]
  - Acute respiratory failure [Unknown]
  - Type 1 diabetes mellitus [Unknown]
  - Blood triglycerides increased [Unknown]
